FAERS Safety Report 21691683 (Version 1)
Quarter: 2022Q4

REPORT INFORMATION
  Report Type: Report from Study
  Country: US (occurrence: US)
  Receive Date: 20221207
  Receipt Date: 20221207
  Transmission Date: 20230112
  Serious: No
  Sender: FDA-Public Use
  Company Number: US-ABBVIE-4193140

PATIENT
  Sex: Female

DRUGS (4)
  1. MAVYRET [Suspect]
     Active Substance: GLECAPREVIR\PIBRENTASVIR
     Indication: Chronic hepatitis C
     Dosage: TIME INTERVAL: 0.33333333 DAYS
     Route: 048
  2. PROPRANOLOL HCL PANTOPRAZOLE SODIUM [Concomitant]
     Indication: Product used for unknown indication
  3. SERTRALINE HYDROCHLORIDE GABAPENTIN [Concomitant]
     Indication: Product used for unknown indication
  4. EUTHYROX LOSARTAN POTASSIUM [Concomitant]
     Indication: Product used for unknown indication

REACTIONS (1)
  - Product use complaint [Unknown]
